FAERS Safety Report 5733322-2 (Version None)
Quarter: 2008Q2

REPORT INFORMATION
  Report Type: 
  Country: None (occurrence: None)
  Receive Date: 20080509
  Receipt Date: 20080429
  Transmission Date: 20081010
  Serious: Yes (Hospitalization, Other)
  Sender: FDA-Public Use
  Company Number: US-ABBOTT-08P-163-0450463-00

PATIENT
  Age: 43 Year
  Sex: Male

DRUGS (2)
  1. TRIAMCINOLONE ACETONIDE [Suspect]
     Indication: RHINITIS PERENNIAL
     Route: 055
  2. ALPRAZOLAM [Concomitant]
     Indication: ANXIETY
     Dosage: NOT REPORTED

REACTIONS (3)
  - FOREIGN BODY ASPIRATION [None]
  - PNEUMOMEDIASTINUM [None]
  - PNEUMOTHORAX [None]
